FAERS Safety Report 16994469 (Version 3)
Quarter: 2019Q4

REPORT INFORMATION
  Report Type: Spontaneous
  Country: US (occurrence: US)
  Receive Date: 20191105
  Receipt Date: 20191211
  Transmission Date: 20200122
  Serious: No
  Sender: FDA-Public Use
  Company Number: US-JNJFOC-20191041497

PATIENT
  Age: 85 Year
  Sex: Female
  Weight: 81.72 kg

DRUGS (2)
  1. XARELTO [Suspect]
     Active Substance: RIVAROXABAN
     Indication: CEREBROVASCULAR ACCIDENT PROPHYLAXIS
     Route: 048
     Dates: start: 20190927
  2. XARELTO [Suspect]
     Active Substance: RIVAROXABAN
     Indication: ATRIAL FIBRILLATION

REACTIONS (11)
  - Malaise [Not Recovered/Not Resolved]
  - Agitation [Not Recovered/Not Resolved]
  - Painful respiration [Not Recovered/Not Resolved]
  - Anxiety [Not Recovered/Not Resolved]
  - Product packaging quantity issue [Unknown]
  - Product dose omission [Unknown]
  - Product label issue [Unknown]
  - Chest pain [Not Recovered/Not Resolved]
  - Dyspnoea [Not Recovered/Not Resolved]
  - Fatigue [Unknown]
  - Abnormal loss of weight [Unknown]

NARRATIVE: CASE EVENT DATE: 201909
